FAERS Safety Report 12502003 (Version 1)
Quarter: 2016Q2

REPORT INFORMATION
  Report Type: Report from Study
  Country: NL (occurrence: NL)
  Receive Date: 20160627
  Receipt Date: 20160627
  Transmission Date: 20160815
  Serious: Yes (Other)
  Sender: FDA-Public Use
  Company Number: NL-ABBVIE-16P-114-1661737-00

PATIENT
  Age: 58 Year
  Sex: Male

DRUGS (1)
  1. DUODOPA [Suspect]
     Active Substance: CARBIDOPA\LEVODOPA
     Indication: PARKINSON^S DISEASE
     Dosage: MORNING DOSE: 4.0, CONTINUOUS DOSE: 3.8, EXTRA DOSE: 2.0, NIGHT DOSE: 1.5
     Route: 050
     Dates: start: 20150112

REACTIONS (4)
  - Knee operation [Recovered/Resolved]
  - Drug administration error [Not Recovered/Not Resolved]
  - Tension [Not Recovered/Not Resolved]
  - Off label use [Unknown]

NARRATIVE: CASE EVENT DATE: 20150112
